FAERS Safety Report 8091290-5 (Version None)
Quarter: 2012Q1

REPORT INFORMATION
  Report Type: 
  Country: None (occurrence: None)
  Receive Date: 20120129
  Receipt Date: 20111024
  Transmission Date: 20120608
  Serious: Yes (Other)
  Sender: FDA-Public Use
  Company Number: US-ABBOTT-11P-163-0868302-00

PATIENT
  Sex: Male
  Weight: 95.34 kg

DRUGS (10)
  1. HUMIRA [Suspect]
     Indication: RHEUMATOID ARTHRITIS
     Dates: start: 20100301, end: 20101001
  2. LOSARTAN POTASSIUM [Concomitant]
     Indication: HYPERTENSION
  3. LIPITOR [Concomitant]
     Indication: BLOOD CHOLESTEROL INCREASED
  4. INDOMETHACIN [Concomitant]
     Indication: RHEUMATOID ARTHRITIS
  5. METHOTREXATE [Concomitant]
     Indication: RHEUMATOID ARTHRITIS
  6. ARAVA [Concomitant]
     Indication: RHEUMATOID ARTHRITIS
  7. LEVOXYL [Concomitant]
     Indication: HYPOTHYROIDISM
  8. LOPRESSOR [Concomitant]
     Indication: HYPERTENSION
  9. FOLIC ACID [Concomitant]
     Indication: VITAMIN SUPPLEMENTATION
  10. HYDROXYCHLOROQUINE SULFATE [Concomitant]
     Indication: RHEUMATOID ARTHRITIS

REACTIONS (3)
  - ARTHROPATHY [None]
  - FEELING ABNORMAL [None]
  - PAIN [None]
